FAERS Safety Report 7133947-6 (Version None)
Quarter: 2010Q4

REPORT INFORMATION
  Report Type: 
  Country: None (occurrence: None)
  Receive Date: 20101203
  Receipt Date: 20101122
  Transmission Date: 20110411
  Serious: Yes (Hospitalization)
  Sender: FDA-Public Use
  Company Number: US-BAYER-201047958GPV

PATIENT

DRUGS (1)
  1. VENTAVIS [Suspect]
     Indication: PULMONARY ARTERIAL HYPERTENSION
     Dosage: FIRST SHIPMENT 15 OCT 2007, LAST SHIPMENT 29 OCT 2010
     Route: 055

REACTIONS (1)
  - CEREBRAL HAEMATOMA [None]
